FAERS Safety Report 5822565-5 (Version None)
Quarter: 2008Q3

REPORT INFORMATION
  Report Type: 
  Country: None (occurrence: None)
  Receive Date: 20080722
  Receipt Date: 20080714
  Transmission Date: 20090109
  Serious: Yes (Other)
  Sender: FDA-Public Use
  Company Number: 2008SP014453

PATIENT
  Age: 49 Year
  Sex: Male
  Weight: 85 kg

DRUGS (2)
  1. PEG-INTRON [Suspect]
     Indication: HEPATITIS C VIRUS TEST
     Dosage: 120 MCG;QW;SC
     Route: 058
     Dates: start: 20070718, end: 20070905
  2. REBETOL [Suspect]
     Indication: HEPATITIS C VIRUS TEST
     Dosage: 1200 MG;QD;PO
     Route: 048
     Dates: start: 20070718, end: 20070905

REACTIONS (2)
  - ALANINE AMINOTRANSFERASE INCREASED [None]
  - GAMMA-GLUTAMYLTRANSFERASE INCREASED [None]
